FAERS Safety Report 15855639 (Version 1)
Quarter: 2019Q1

REPORT INFORMATION
  Report Type: Report from Study
  Country: None (occurrence: US)
  Receive Date: 20190122
  Receipt Date: 20190122
  Transmission Date: 20190417
  Serious: Yes (Hospitalization, Other)
  Sender: FDA-Public Use
  Company Number: US-ABBVIE-18K-163-2509000-00

PATIENT
  Age: 29 Year
  Sex: Female

DRUGS (3)
  1. HUMIRA [Suspect]
     Active Substance: ADALIMUMAB
     Route: 058
     Dates: start: 201810, end: 2018
  2. HUMIRA [Suspect]
     Active Substance: ADALIMUMAB
     Route: 058
  3. HUMIRA [Suspect]
     Active Substance: ADALIMUMAB
     Indication: PSORIATIC ARTHROPATHY
     Dosage: ON DAY 1
     Route: 058
     Dates: start: 20181001, end: 20181001

REACTIONS (13)
  - Anxiety [Unknown]
  - Injection site swelling [Recovered/Resolved]
  - Nasal congestion [Unknown]
  - Gait disturbance [Unknown]
  - Fatigue [Unknown]
  - Musculoskeletal discomfort [Unknown]
  - Arthralgia [Unknown]
  - Injection site erythema [Recovered/Resolved]
  - Pain in extremity [Unknown]
  - Loss of personal independence in daily activities [Unknown]
  - Thyroidectomy [Recovering/Resolving]
  - Joint lock [Unknown]
  - Depression [Unknown]

NARRATIVE: CASE EVENT DATE: 2018
